FAERS Safety Report 13851605 (Version 5)
Quarter: 2017Q4

REPORT INFORMATION
  Report Type: Spontaneous
  Country: US (occurrence: US)
  Receive Date: 20170809
  Receipt Date: 20171212
  Transmission Date: 20180320
  Serious: Yes (Other)
  Sender: FDA-Public Use
  Company Number: US-PFIZER INC-2017341177

PATIENT
  Age: 58 Year
  Sex: Female

DRUGS (1)
  1. XELJANZ XR [Suspect]
     Active Substance: TOFACITINIB CITRATE
     Indication: RHEUMATOID ARTHRITIS
     Dosage: 11 MG, UNK

REACTIONS (13)
  - Peripheral swelling [Unknown]
  - Anxiety [Unknown]
  - Erythema [Unknown]
  - Condition aggravated [Recovering/Resolving]
  - Asthma [Unknown]
  - Gastrooesophageal reflux disease [Unknown]
  - Pain [Unknown]
  - Sleep apnoea syndrome [Unknown]
  - Diarrhoea [Unknown]
  - Drug ineffective [Unknown]
  - Skin exfoliation [Unknown]
  - Idiopathic pulmonary fibrosis [Unknown]
  - Paraesthesia [Unknown]
